FAERS Safety Report 15419835 (Version 1)
Quarter: 2018Q3

REPORT INFORMATION
  Report Type: Spontaneous
  Country: GB (occurrence: GB)
  Receive Date: 20180924
  Receipt Date: 20180924
  Transmission Date: 20181010
  Serious: Yes (Other)
  Sender: FDA-Public Use
  Company Number: GB-PFIZER INC-2018375845

PATIENT
  Age: 88 Year
  Sex: Female
  Weight: 58 kg

DRUGS (10)
  1. LANSOPRAZOLE. [Concomitant]
     Active Substance: LANSOPRAZOLE
     Dosage: 1 DF, 1X/DAY
     Dates: start: 20180227
  2. RISPERIDONE. [Concomitant]
     Active Substance: RISPERIDONE
     Dosage: 2 DF, 1X/DAY
     Dates: start: 20180227
  3. GABAPENTIN. [Suspect]
     Active Substance: GABAPENTIN
     Dates: start: 20180626
  4. AMOXICILLIN. [Concomitant]
     Active Substance: AMOXICILLIN
     Dosage: 3 DF, 1X/DAY
     Dates: start: 20180503, end: 20180508
  5. DIAZEPAM. [Concomitant]
     Active Substance: DIAZEPAM
     Dosage: 1 DF, AS NEEDED
     Dates: start: 20180424, end: 20180504
  6. TRIMETHOPRIM. [Concomitant]
     Active Substance: TRIMETHOPRIM
     Dosage: 2 DF, 1X/DAY
     Dates: start: 20180615, end: 20180616
  7. FUROSEMIDE. [Concomitant]
     Active Substance: FUROSEMIDE
     Dosage: 1 DF, 1X/DAY (MORNING)
     Dates: start: 20180522, end: 20180619
  8. CETRABEN [LIGHT LIQUID PARAFFIN;WHITE SOFT PARAFFIN] [Concomitant]
     Dosage: APPLY AS DIRECTED
     Dates: start: 20180618
  9. FLUCLOXACILLIN [Concomitant]
     Active Substance: FLUCLOXACILLIN
     Dosage: 4 DF, 1X/DAY
     Dates: start: 20180604, end: 20180611
  10. MIRTAZAPINE. [Concomitant]
     Active Substance: MIRTAZAPINE
     Dosage: 1 DF, 1X/DAY (EVENING)
     Dates: start: 20171110

REACTIONS (1)
  - Gastric ulcer [Unknown]

NARRATIVE: CASE EVENT DATE: 20180626
